FAERS Safety Report 11447220 (Version 1)
Quarter: 2015Q3

REPORT INFORMATION
  Report Type: Spontaneous
  Country: US (occurrence: US)
  Receive Date: 20150831
  Receipt Date: 20150831
  Transmission Date: 20151125
  Serious: No
  Sender: FDA-Public Use
  Company Number: US-ELI_LILLY_AND_COMPANY-US200902007733

PATIENT
  Age: 92 Year
  Sex: Male

DRUGS (1)
  1. CYMBALTA [Suspect]
     Active Substance: DULOXETINE HYDROCHLORIDE
     Dates: end: 200901

REACTIONS (3)
  - Constipation [Recovered/Resolved]
  - Urinary retention [Not Recovered/Not Resolved]
  - Mental status changes [Not Recovered/Not Resolved]
